FAERS Safety Report 4603143-2 (Version None)
Quarter: 2005Q1

REPORT INFORMATION
  Report Type: 
  Country: None (occurrence: None)
  Receive Date: 20050307
  Receipt Date: 20050222
  Transmission Date: 20050727
  Serious: Yes (Other)
  Sender: FDA-Public Use
  Company Number: HQWYE560824FEB05

PATIENT

DRUGS (2)
  1. RAPAMUNE [Suspect]
     Indication: IMMUNOSUPPRESSANT DRUG THERAPY
  2. RAPAMUNE [Suspect]
     Dosage: UNSPECIFIED LOWER DOSE

REACTIONS (1)
  - LEUKOCYTOCLASTIC VASCULITIS [None]
